FAERS Safety Report 8579321-7 (Version None)
Quarter: 2012Q3

REPORT INFORMATION
  Report Type: 
  Country: None (occurrence: None)
  Receive Date: 20120808
  Receipt Date: 20120806
  Transmission Date: 20120928
  Serious: Yes (Other)
  Sender: FDA-Public Use
  Company Number: GB-ROCHE-1098510

PATIENT
  Sex: Female

DRUGS (1)
  1. TAMIFLU [Suspect]
     Indication: PRODUCT USED FOR UNKNOWN INDICATION
     Route: 065
     Dates: start: 20090101

REACTIONS (1)
  - CONVULSION [None]
